FAERS Safety Report 6941032-9 (Version None)
Quarter: 2010Q3

REPORT INFORMATION
  Report Type: 
  Country: None (occurrence: None)
  Receive Date: 20100825
  Receipt Date: 20100823
  Transmission Date: 20110219
  Serious: Yes (Life-Threatening, Hospitalization)
  Sender: FDA-Public Use
  Company Number: B0671040A

PATIENT
  Sex: Female

DRUGS (4)
  1. AUGMENTIN '125' [Suspect]
     Indication: PROPHYLAXIS
     Route: 042
     Dates: start: 20100323, end: 20100323
  2. HYPNOVEL [Concomitant]
     Route: 042
     Dates: start: 20100323, end: 20100323
  3. DIPRIVAN [Concomitant]
     Route: 042
     Dates: start: 20100323, end: 20100323
  4. ALFENTANIL [Concomitant]
     Route: 042
     Dates: start: 20100323, end: 20100323

REACTIONS (7)
  - BLOOD IMMUNOGLOBULIN E INCREASED [None]
  - BRONCHOSPASM [None]
  - HISTAMINE LEVEL INCREASED [None]
  - HYPOTENSION [None]
  - RASH GENERALISED [None]
  - TACHYCARDIA [None]
  - TRYPTASE INCREASED [None]
